FAERS Safety Report 7621390-2 (Version None)
Quarter: 2011Q3

REPORT INFORMATION
  Report Type: 
  Country: None (occurrence: None)
  Receive Date: 20110719
  Receipt Date: 20110712
  Transmission Date: 20111222
  Serious: Yes (Other)
  Sender: FDA-Public Use
  Company Number: BR-PFIZER INC-2011158158

PATIENT
  Sex: Female

DRUGS (4)
  1. LYRICA [Suspect]
     Indication: PAIN
     Dosage: 75 MG, 1X/DAY
     Route: 048
     Dates: start: 20110607, end: 20110608
  2. SINVASCOR [Concomitant]
     Dosage: UNK
     Dates: start: 20030101
  3. ANCORON [Concomitant]
     Dosage: UNK
     Dates: start: 20030101
  4. BENICAR [Concomitant]
     Indication: HYPERTENSION
     Dosage: UNK
     Dates: start: 20030101

REACTIONS (1)
  - HYPERSOMNIA [None]
